FAERS Safety Report 5162392-8 (Version None)
Quarter: 2006Q4

REPORT INFORMATION
  Report Type: 
  Country: None (occurrence: None)
  Receive Date: 20061129
  Receipt Date: 20061129
  Transmission Date: 20070319
  Serious: Yes (Life-Threatening, Other)
  Sender: FDA-Public Use
  Company Number: None

PATIENT
  Sex: Female
  Weight: 81.6475 kg

DRUGS (7)
  1. NEXIUM [Suspect]
     Indication: DYSKINESIA OESOPHAGEAL
     Dates: start: 19850101, end: 20061201
  2. NEXIUM [Suspect]
     Indication: GASTROOESOPHAGEAL REFLUX DISEASE
     Dates: start: 19850101, end: 20061201
  3. CIMETIDINE [Concomitant]
  4. -OTHER- [Concomitant]
  5. ACIFEX [Concomitant]
  6. PRILOSEC [Concomitant]
  7. NEXIUM [Concomitant]

REACTIONS (5)
  - ANGINA PECTORIS [None]
  - DIARRHOEA [None]
  - OESOPHAGEAL SPASM [None]
  - ORAL INTAKE REDUCED [None]
  - VOMITING [None]
